FAERS Safety Report 8793148 (Version 1)
Quarter: 2012Q4

REPORT INFORMATION
  Report Type: 
  Country: GB (occurrence: GB)
  Receive Date: 20120918
  Receipt Date: 20120918
  Transmission Date: 20130627
  Serious: Yes (Other)
  Sender: FDA-Public Use
  Company Number: GB-009507513-1209GBR006421

PATIENT

DRUGS (6)
  1. JANUVIA [Suspect]
     Indication: DIABETES MELLITUS
     Dosage: 100 mg, UNK
     Route: 048
     Dates: start: 20120508, end: 20120626
  2. CODEINE PHOSPHATE [Concomitant]
  3. FINASTERIDE [Concomitant]
  4. GLICLAZIDE [Concomitant]
  5. METFORMIN [Concomitant]
  6. SIMVASTATIN [Concomitant]

REACTIONS (1)
  - Joint swelling [Recovering/Resolving]
